FAERS Safety Report 14573275 (Version 3)
Quarter: 2019Q4

REPORT INFORMATION
  Report Type: Other
  Country: NL (occurrence: NL)
  Receive Date: 20180226
  Receipt Date: 20191226
  Transmission Date: 20200122
  Serious: Yes (Hospitalization, Other)
  Sender: FDA-Public Use
  Company Number: NL-RARE DISEASE THERAPEUTICS, INC.-2042571

PATIENT
  Sex: Male

DRUGS (2)
  1. AZATHIOPRINE. [Suspect]
     Active Substance: AZATHIOPRINE
     Route: 065
  2. PURIXAN [Suspect]
     Active Substance: MERCAPTOPURINE
     Indication: COLITIS ULCERATIVE
     Route: 065

REACTIONS (7)
  - Nodular regenerative hyperplasia [Recovered/Resolved]
  - Splenomegaly [Unknown]
  - Colitis ulcerative [None]
  - Portal vein thrombosis [Unknown]
  - Peritonitis bacterial [Unknown]
  - Ascites [Unknown]
  - Oesophageal varices haemorrhage [Unknown]
